FAERS Safety Report 4819039-7 (Version None)
Quarter: 2005Q4

REPORT INFORMATION
  Report Type: 
  Country: None (occurrence: None)
  Receive Date: 20051103
  Receipt Date: 20050802
  Transmission Date: 20060501
  Serious: Yes (Other)
  Sender: FDA-Public Use
  Company Number: PHEH2005US08545

PATIENT
  Age: 74 Year
  Sex: Male

DRUGS (3)
  1. ZOMETA [Suspect]
     Indication: MULTIPLE MYELOMA
     Dosage: 4 MG QMONTH
     Dates: start: 20050207, end: 20050726
  2. THALIDOMIDE [Concomitant]
  3. DECADRON /CAN/ [Concomitant]
     Dosage: 40 MG, QD X 4DAYS, Q28DAYS

REACTIONS (4)
  - BONE DISORDER [None]
  - GINGIVAL DISORDER [None]
  - PAIN [None]
  - TOOTH DISORDER [None]
